FAERS Safety Report 7410715-9 (Version None)
Quarter: 2011Q2

REPORT INFORMATION
  Report Type: 
  Country: None (occurrence: None)
  Receive Date: 20110413
  Receipt Date: 20110404
  Transmission Date: 20111010
  Serious: Yes (Other)
  Sender: FDA-Public Use
  Company Number: US-RB-024290-11

PATIENT
  Sex: Female

DRUGS (5)
  1. TRAZODINE [Concomitant]
  2. MUCINEX D [Suspect]
     Dosage: PATIENT LAST TOOK THIS PRODUCT ON 05-DEC-2010.
     Route: 048
  3. FAMOTIDINE [Concomitant]
  4. LOSARTAN [Concomitant]
  5. ZOLOFT [Concomitant]

REACTIONS (9)
  - SWELLING [None]
  - EPISTAXIS [None]
  - BLOOD PRESSURE INCREASED [None]
  - PAIN [None]
  - SWELLING FACE [None]
  - BLISTER [None]
  - RHINORRHOEA [None]
  - ANXIETY [None]
  - BURNING SENSATION [None]
